FAERS Safety Report 8790728 (Version 1)
Quarter: 2012Q4

REPORT INFORMATION
  Report Type: Spontaneous
  Country: GB (occurrence: None)
  Receive Date: 20120910
  Receipt Date: 20120910
  Transmission Date: 20130627
  Serious: Yes (Hospitalization)
  Sender: FDA-Public Use
  Company Number: GB-BANPHARM-20120103

PATIENT
  Age: 52 Year
  Sex: Female

DRUGS (4)
  1. IBUPROFEN [Suspect]
     Indication: LOW BACK PAIN
     Route: 048
     Dates: end: 20120815
  2. BETAMETHASONE SODIUM PHOSPHATE [Concomitant]
  3. LISINOPRIL [Concomitant]
  4. PARACETAMOL [Concomitant]

REACTIONS (2)
  - Abdominal pain [None]
  - Duodenal ulcer perforation [None]
